FAERS Safety Report 4991070-0 (Version None)
Quarter: 2006Q2

REPORT INFORMATION
  Report Type: 
  Country: None (occurrence: None)
  Receive Date: 20060503
  Receipt Date: 20060214
  Transmission Date: 20061013
  Serious: Yes (Hospitalization)
  Sender: FDA-Public Use
  Company Number: US-MERCK-0602USA04333

PATIENT
  Age: 68 Year
  Sex: Female
  Weight: 75 kg

DRUGS (1)
  1. VIOXX [Suspect]
     Indication: OSTEOARTHRITIS
     Route: 048
     Dates: start: 20000101, end: 20040101

REACTIONS (45)
  - ACUTE MYOCARDIAL INFARCTION [None]
  - ANGIOPATHY [None]
  - ARTERIAL STENOSIS LIMB [None]
  - ARTHRALGIA [None]
  - ASTHENIA [None]
  - BLISTER [None]
  - BLOOD PRESSURE INADEQUATELY CONTROLLED [None]
  - CARDIAC ARREST [None]
  - CARDIO-RESPIRATORY ARREST [None]
  - CORONARY ARTERY DISEASE [None]
  - CORONARY ARTERY OCCLUSION [None]
  - DERMATITIS ALLERGIC [None]
  - DERMATITIS CONTACT [None]
  - DIABETES MELLITUS NON-INSULIN-DEPENDENT [None]
  - DIZZINESS [None]
  - DYSAESTHESIA [None]
  - ECCHYMOSIS [None]
  - FALL [None]
  - FATIGUE [None]
  - FEMORAL ARTERIAL STENOSIS [None]
  - GASTROOESOPHAGEAL REFLUX DISEASE [None]
  - HYPERCHOLESTEROLAEMIA [None]
  - HYPOKALAEMIA [None]
  - IMPAIRED HEALING [None]
  - INCORRECT DOSE ADMINISTERED [None]
  - JOINT DISLOCATION [None]
  - LIMB INJURY [None]
  - NERVE COMPRESSION [None]
  - NEUROPATHY [None]
  - ONYCHOCLASIS [None]
  - OSTEOARTHRITIS [None]
  - OSTEOPOROSIS [None]
  - PERIPHERAL ISCHAEMIA [None]
  - PERIPHERAL VASCULAR DISORDER [None]
  - PROCEDURAL PAIN [None]
  - PSEUDOMONAS INFECTION [None]
  - RENAL ARTERY STENOSIS [None]
  - ROTATOR CUFF SYNDROME [None]
  - SHOULDER PAIN [None]
  - SKIN NECROSIS [None]
  - SKIN ULCER [None]
  - ULCER [None]
  - VENTRICULAR FIBRILLATION [None]
  - VERTIGO [None]
  - WOUND INFECTION PSEUDOMONAS [None]
